FAERS Safety Report 8167753-0 (Version None)
Quarter: 2012Q1

REPORT INFORMATION
  Report Type: 
  Country: None (occurrence: None)
  Receive Date: 20120227
  Receipt Date: 20120221
  Transmission Date: 20120608
  Serious: No
  Sender: FDA-Public Use
  Company Number: US-PFIZER INC-2012039223

PATIENT
  Sex: Male
  Weight: 95.2 kg

DRUGS (1)
  1. DEPO-TESTOSTERONE [Suspect]
     Indication: BLOOD TESTOSTERONE DECREASED
     Dosage: HALF A CC, WEEKLY
     Dates: start: 20120212

REACTIONS (5)
  - FEELING HOT [None]
  - FEELING ABNORMAL [None]
  - MALAISE [None]
  - RASH [None]
  - NAUSEA [None]
